FAERS Safety Report 5407298-1 (Version None)
Quarter: 2007Q3

REPORT INFORMATION
  Report Type: 
  Country: None (occurrence: None)
  Receive Date: 20070807
  Receipt Date: 20070801
  Transmission Date: 20080115
  Serious: Yes (Other)
  Sender: FDA-Public Use
  Company Number: US-ASTRAZENECA-2007UW18480

PATIENT
  Sex: Female

DRUGS (1)
  1. ARIMIDEX [Suspect]
     Indication: BREAST CANCER
     Route: 048

REACTIONS (3)
  - ARTHRALGIA [None]
  - CONTUSION [None]
  - JOINT SWELLING [None]
